FAERS Safety Report 8171394-9 (Version None)
Quarter: 2012Q1

REPORT INFORMATION
  Report Type: 
  Country: None (occurrence: None)
  Receive Date: 20120228
  Receipt Date: 20120221
  Transmission Date: 20120608
  Serious: Yes (Other)
  Sender: FDA-Public Use
  Company Number: US-PFIZER INC-2012046140

PATIENT
  Age: 20 Year
  Sex: Male

DRUGS (2)
  1. SEPTRA [Suspect]
     Indication: ACNE
     Dosage: UNK
  2. AMPICILLIN [Suspect]
     Dosage: UNK

REACTIONS (3)
  - HYPOGONADISM [None]
  - ALOPECIA [None]
  - SWELLING FACE [None]
